FAERS Safety Report 13125653 (Version 1)
Quarter: 2017Q1

REPORT INFORMATION
  Report Type: Spontaneous
  Country: US (occurrence: US)
  Receive Date: 20170118
  Receipt Date: 20170118
  Transmission Date: 20170428
  Serious: Yes (Other)
  Sender: FDA-Public Use
  Company Number: US-BRISTOL-MYERS SQUIBB COMPANY-BMS-2017-002501

PATIENT
  Age: 52 Year
  Sex: Female
  Weight: 63.49 kg

DRUGS (1)
  1. ELIQUIS [Suspect]
     Active Substance: APIXABAN
     Indication: DEEP VEIN THROMBOSIS
     Dosage: UNK, BID
     Route: 065

REACTIONS (3)
  - Arrhythmia [Unknown]
  - Dental care [Unknown]
  - Drug ineffective [Unknown]

NARRATIVE: CASE EVENT DATE: 201612
